FAERS Safety Report 12856042 (Version 4)
Quarter: 2017Q2

REPORT INFORMATION
  Report Type: Spontaneous
  Country: SG (occurrence: SG)
  Receive Date: 20161018
  Receipt Date: 20170421
  Transmission Date: 20170830
  Serious: Yes (Hospitalization, Other)
  Sender: FDA-Public Use
  Company Number: SG-CONCORDIA PHARMACEUTICALS INC.-GSH201610-005158

PATIENT
  Age: 37 Year
  Sex: Female

DRUGS (4)
  1. HYDROXYCHLOROQUINE [Suspect]
     Active Substance: HYDROXYCHLOROQUINE
     Indication: PRODUCT USED FOR UNKNOWN INDICATION
     Route: 065
  2. LOW MOLECULAR WEIGHT HEPARIN [Suspect]
     Active Substance: UNSPECIFIED INGREDIENT
  3. ACETYLSALICYLIC ACID [Suspect]
     Active Substance: ASPIRIN
     Indication: ANTICOAGULANT THERAPY
     Route: 065
  4. PREDNISOLONE. [Suspect]
     Active Substance: PREDNISOLONE
     Indication: PRODUCT USED FOR UNKNOWN INDICATION
     Route: 065

REACTIONS (21)
  - Haematoma [Unknown]
  - Condition aggravated [Unknown]
  - Thrombocytopenia [Unknown]
  - Exposure during pregnancy [Unknown]
  - Antiphospholipid syndrome [Unknown]
  - Sepsis [Unknown]
  - Hypertension [Unknown]
  - Premature separation of placenta [Unknown]
  - Stillbirth [Unknown]
  - Abdominal pain [Unknown]
  - Hepatic enzyme increased [Unknown]
  - Foetal growth restriction [Unknown]
  - Thunderclap headache [Unknown]
  - Haemolysis [Unknown]
  - Retained products of conception [Unknown]
  - Vaginal haemorrhage [Unknown]
  - Proteinuria [Unknown]
  - Blood pressure systolic increased [Unknown]
  - Postpartum haemorrhage [Unknown]
  - Pyrexia [Unknown]
  - Platelet count decreased [Unknown]
